FAERS Safety Report 4533053-0 (Version None)
Quarter: 2004Q4

REPORT INFORMATION
  Report Type: 
  Country: None (occurrence: None)
  Receive Date: 20041221
  Receipt Date: 20041022
  Transmission Date: 20050328
  Serious: No
  Sender: FDA-Public Use
  Company Number: 200414011FR

PATIENT
  Age: 79 Year
  Sex: Female
  Weight: 59 kg

DRUGS (2)
  1. KETEK [Suspect]
     Indication: PNEUMONIA
     Route: 048
     Dates: start: 20040928, end: 20040930
  2. PREDNISOLONE [Suspect]
     Route: 048
     Dates: start: 20040928, end: 20041004

REACTIONS (1)
  - HALLUCINATION, VISUAL [None]
